FAERS Safety Report 5130716-3 (Version None)
Quarter: 2006Q3

REPORT INFORMATION
  Report Type: 
  Country: None (occurrence: None)
  Receive Date: 20060829
  Receipt Date: 20060724
  Transmission Date: 20061208
  Serious: No
  Sender: FDA-Public Use
  Company Number: PHEH2006US09494

PATIENT
  Sex: Male

DRUGS (6)
  1. EXJADE [Suspect]
     Indication: IRON OVERLOAD
     Dosage: TID
     Dates: start: 20060524
  2. NEORAL [Suspect]
     Indication: HAEMOGLOBIN DECREASED
     Dosage: 3 X 100MG, QD
     Dates: start: 20060602
  3. IMMUNOGLOBULIN G HUMAN (IMMUNOGLOBULIN G HUMAN) [Concomitant]
  4. FOLIC ACID [Concomitant]
  5. AVODART [Concomitant]
  6. THYROID TAB [Concomitant]

REACTIONS (1)
  - PLATELET COUNT DECREASED [None]
